FAERS Safety Report 19542484 (Version 1)
Quarter: 2021Q3

REPORT INFORMATION
  Report Type: Spontaneous
  Country: US (occurrence: US)
  Receive Date: 20210713
  Receipt Date: 20210713
  Transmission Date: 20211014
  Serious: Yes (Death)
  Sender: FDA-Public Use
  Company Number: US-ENDO PHARMACEUTICALS INC-2021-005441

PATIENT
  Age: 39 Year
  Sex: Female

DRUGS (2)
  1. RANITIDINE. [Suspect]
     Active Substance: RANITIDINE
     Indication: DYSPEPSIA
     Dosage: 150 MG, UNKNOWN
     Route: 065
     Dates: start: 201103, end: 201902
  2. RANITIDINE HYDROCHLORIDE. [Suspect]
     Active Substance: RANITIDINE HYDROCHLORIDE
     Indication: DYSPEPSIA
     Dosage: 150 MG, UNKNOWN
     Route: 065
     Dates: start: 201103, end: 201902

REACTIONS (3)
  - Breast cancer stage II [Fatal]
  - Hepatic cancer stage IV [Fatal]
  - Brain neoplasm [Fatal]

NARRATIVE: CASE EVENT DATE: 20090101
